FAERS Safety Report 5722178-X (Version None)
Quarter: 2008Q2

REPORT INFORMATION
  Report Type: 
  Country: None (occurrence: None)
  Receive Date: 20080425
  Receipt Date: 20080414
  Transmission Date: 20081010
  Serious: Yes (Other)
  Sender: FDA-Public Use
  Company Number: 163-21880-08041179

PATIENT
  Age: 76 Year
  Sex: Female

DRUGS (2)
  1. REVLIMID [Suspect]
     Indication: MULTIPLE MYELOMA
     Dosage: 25 MG, 1 IN 1 D, ORAL, 20 MG, 2 IN 1 D, ORAL
     Route: 048
     Dates: start: 20080318, end: 20080401
  2. REVLIMID [Suspect]
     Indication: MULTIPLE MYELOMA
     Dosage: 25 MG, 1 IN 1 D, ORAL, 20 MG, 2 IN 1 D, ORAL
     Route: 048
     Dates: start: 20080407

REACTIONS (2)
  - FATIGUE [None]
  - THROAT TIGHTNESS [None]
